FAERS Safety Report 6750225-5 (Version None)
Quarter: 2010Q2

REPORT INFORMATION
  Report Type: 
  Country: None (occurrence: None)
  Receive Date: 20100601
  Receipt Date: 20100521
  Transmission Date: 20101027
  Serious: Yes (Other)
  Sender: FDA-Public Use
  Company Number: MY-PFIZER INC-2010063872

PATIENT
  Age: 28 Year
  Sex: Female

DRUGS (1)
  1. ZITHROMAX [Suspect]
     Indication: PNEUMONIA
     Dosage: 500 MG, 1X/DAY
     Route: 042
     Dates: start: 20090518

REACTIONS (6)
  - ASTHENIA [None]
  - DYSPNOEA [None]
  - INJECTION SITE IRRITATION [None]
  - LETHARGY [None]
  - PALPITATIONS [None]
  - WHEEZING [None]
